FAERS Safety Report 15923546 (Version 2)
Quarter: 2019Q1

REPORT INFORMATION
  Report Type: Report from Study
  Country: IT (occurrence: IT)
  Receive Date: 20190206
  Receipt Date: 20190221
  Transmission Date: 20190417
  Serious: Yes (Other)
  Sender: FDA-Public Use
  Company Number: IT-ACCORD-105746

PATIENT
  Age: 71 Year
  Sex: Female
  Weight: 57 kg

DRUGS (3)
  1. GEMCITABINE ACCORD [Suspect]
     Active Substance: GEMCITABINE HYDROCHLORIDE
     Indication: ADENOCARCINOMA PANCREAS
     Dosage: STRENGTH 100 MG / ML
     Route: 042
     Dates: start: 20180124
  2. CISPLATIN ACCORD [Concomitant]
     Active Substance: CISPLATIN
     Indication: ADENOCARCINOMA PANCREAS
     Dosage: STRENGTH 1 MG / ML CONCENTRATE FOR SOLUTION
     Route: 042
     Dates: start: 20180124
  3. ABRAXANE [Concomitant]
     Active Substance: PACLITAXEL
     Indication: ADENOCARCINOMA PANCREAS
     Dosage: STRENGTH 5 MG / ML POWDER FOR SUSPENSION FOR INFUSION
     Route: 042
     Dates: start: 20180124

REACTIONS (4)
  - Leukopenia [Recovering/Resolving]
  - Thrombocytopenia [Recovering/Resolving]
  - Anaemia [Recovering/Resolving]
  - Neutropenia [Recovering/Resolving]

NARRATIVE: CASE EVENT DATE: 20180502
